FAERS Safety Report 25804239 (Version 1)
Quarter: 2025Q3

REPORT INFORMATION
  Report Type: Spontaneous
  Country: EU (occurrence: EU)
  Receive Date: 20250915
  Receipt Date: 20250915
  Transmission Date: 20251020
  Serious: Yes (Hospitalization, Congenital Anomaly, Other)
  Sender: SK LIFE SCIENCE
  Company Number: None

PATIENT

DRUGS (8)
  1. XCOPRI [Suspect]
     Active Substance: CENOBAMATE
     Indication: Product used for unknown indication
     Dosage: (12.5 MILLIGRAM(S), 1 IN 1 DAY)
     Route: 048
     Dates: start: 20250419
  2. XCOPRI [Suspect]
     Active Substance: CENOBAMATE
     Dosage: (25 MILLIGRAM(S), 1 IN 1 DAY)
     Route: 048
  3. XCOPRI [Suspect]
     Active Substance: CENOBAMATE
     Dosage: (50 MILLIGRAM(S), 1 IN 1 DAY)
     Route: 048
  4. XCOPRI [Suspect]
     Active Substance: CENOBAMATE
     Dosage: (100 MILLIGRAM(S), 1 IN 1 DAY)
     Route: 048
     Dates: end: 20250610
  5. VIMPAT [Concomitant]
     Active Substance: LACOSAMIDE
     Indication: Partial seizures
     Dosage: 150MG.TAB X 2
     Route: 048
     Dates: start: 20240126
  6. CLOBAZAM [Concomitant]
     Active Substance: CLOBAZAM
     Indication: Partial seizures
     Dosage: 5MG X 2
     Route: 048
     Dates: start: 20240126
  7. LEVOTHYROXINE SODIUM [Concomitant]
     Active Substance: LEVOTHYROXINE SODIUM
     Indication: Hypothyroidism
     Route: 048
  8. AUGMENTIN [Concomitant]
     Active Substance: AMOXICILLIN\CLAVULANATE POTASSIUM
     Indication: Infection
     Dosage: 1000MG X 2
     Route: 048
     Dates: start: 20250607, end: 20250609

REACTIONS (1)
  - Drug reaction with eosinophilia and systemic symptoms [Recovered/Resolved]

NARRATIVE: CASE EVENT DATE: 20250610
